FAERS Safety Report 8193210 (Version 5)
Quarter: 2020Q3

REPORT INFORMATION
  Report Type: Report from Study
  Country: US (occurrence: US)
  Receive Date: 20111021
  Receipt Date: 20121002
  Transmission Date: 20201104
  Serious: Yes (Hospitalization)
  Sender: FDA-Public Use
  Company Number: US-JNJFOC-20111004890

PATIENT
  Age: 58 Year
  Sex: Female
  Weight: 92 kg

DRUGS (22)
  1. OMEGA 3 [Concomitant]
     Active Substance: OMEGA-3 FATTY ACIDS
  2. AMLODIPINE / BENAZEPRIL [Concomitant]
  3. FLUTICASONE. [Concomitant]
     Active Substance: FLUTICASONE
     Dates: start: 20110906
  4. TRAMADOL. [Concomitant]
     Active Substance: TRAMADOL
     Dates: start: 20110714
  5. LEVOTHYROXINE. [Concomitant]
     Active Substance: LEVOTHYROXINE
  6. CODEINE PHOSPHATE GUAIFENESIN [Concomitant]
     Active Substance: CODEINE PHOSPHATE\GUAIFENESIN
     Dates: start: 20111005
  7. METFORMIN [Concomitant]
     Active Substance: METFORMIN HYDROCHLORIDE
  8. AZO CRANBERRY [Concomitant]
  9. FOLIC ACID. [Concomitant]
     Active Substance: FOLIC ACID
     Dates: start: 20110523
  10. INDAPAMIDE. [Concomitant]
     Active Substance: INDAPAMIDE
  11. METHOTREXATE. [Concomitant]
     Active Substance: METHOTREXATE
     Route: 048
     Dates: start: 20101123
  12. USTEKINUMAB [Suspect]
     Active Substance: USTEKINUMAB
     Indication: SARCOIDOSIS
     Route: 058
     Dates: start: 20110927
  13. MOXIFLOXACIN. [Concomitant]
     Active Substance: MOXIFLOXACIN
     Dates: start: 20110829
  14. DULOXETINE. [Concomitant]
     Active Substance: DULOXETINE
     Dates: start: 20110714
  15. METOPROLOL. [Concomitant]
     Active Substance: METOPROLOL
     Dates: start: 20110711
  16. PROGESTERONE. [Concomitant]
     Active Substance: PROGESTERONE
     Dates: start: 20110706
  17. NAPROXEN SODIUM. [Concomitant]
     Active Substance: NAPROXEN SODIUM
  18. ASPIRIN. [Concomitant]
     Active Substance: ASPIRIN
  19. USTEKINUMAB [Suspect]
     Active Substance: USTEKINUMAB
     Route: 058
  20. TIZANIDINE. [Concomitant]
     Active Substance: TIZANIDINE
  21. PREGABALIN. [Concomitant]
     Active Substance: PREGABALIN
     Dates: start: 20110714
  22. MULTIVITAMINS [Concomitant]
     Active Substance: VITAMINS

REACTIONS (1)
  - Acute sinusitis [Recovered/Resolved]

NARRATIVE: CASE EVENT DATE: 20111010
